FAERS Safety Report 4736660-5 (Version None)
Quarter: 2005Q3

REPORT INFORMATION
  Report Type: 
  Country: None (occurrence: None)
  Receive Date: 20050804
  Receipt Date: 20050719
  Transmission Date: 20060218
  Serious: Yes (Hospitalization)
  Sender: FDA-Public Use
  Company Number: 20052459

PATIENT
  Age: 57 Year
  Sex: Female

DRUGS (3)
  1. LIORESAL INTRATHECAL (BACLOFEN INJECTION) [Suspect]
     Indication: MUSCLE SPASTICITY
     Dosage: MCG, DAILY, INTRATHECAL
     Route: 037
  2. ORAL BACLOFEN [Concomitant]
  3. IV BENZODIAZEINES [Concomitant]

REACTIONS (6)
  - BODY TEMPERATURE INCREASED [None]
  - DEVICE FAILURE [None]
  - IRRITABILITY [None]
  - MUSCLE SPASTICITY [None]
  - NAUSEA [None]
  - PAIN [None]
